FAERS Safety Report 9493760 (Version 1)
Quarter: 2013Q3

REPORT INFORMATION
  Report Type: Spontaneous
  Country: US (occurrence: US)
  Receive Date: 20130902
  Receipt Date: 20130902
  Transmission Date: 20140515
  Serious: Yes (Hospitalization)
  Sender: FDA-Public Use
  Company Number: US-JNJFOC-20130814595

PATIENT
  Age: 78 Year
  Sex: Female
  Weight: 68.04 kg

DRUGS (8)
  1. XARELTO [Suspect]
     Indication: CEREBROVASCULAR ACCIDENT PROPHYLAXIS
     Route: 048
     Dates: start: 2012
  2. XARELTO [Suspect]
     Indication: ATRIAL FIBRILLATION
     Route: 048
     Dates: start: 2012
  3. TYLENOL [Concomitant]
     Indication: PAIN
     Route: 065
  4. ADVAIR [Concomitant]
     Indication: ASTHMA
     Route: 065
  5. SYNTHROID [Concomitant]
     Indication: THYROID DISORDER
     Route: 048
  6. INDERAL [Concomitant]
     Indication: CARDIAC DISORDER
     Route: 048
  7. ATIVAN [Concomitant]
     Indication: PANIC ATTACK
     Route: 048
  8. ASPIRIN [Concomitant]
     Indication: CARDIAC DISORDER
     Route: 065

REACTIONS (3)
  - Hospitalisation [Unknown]
  - Heart rate increased [Recovered/Resolved]
  - Hypotension [Recovered/Resolved]
